FAERS Safety Report 18998262 (Version 1)
Quarter: 2021Q1

REPORT INFORMATION
  Report Type: Report from Study
  Country: NL (occurrence: NL)
  Receive Date: 20210311
  Receipt Date: 20210311
  Transmission Date: 20210420
  Serious: Yes (Other)
  Sender: FDA-Public Use
  Company Number: NL-TEVA-2021-NL-1887834

PATIENT
  Age: 55 Year
  Sex: Female

DRUGS (5)
  1. LEFLUNOMIDE TABLET  20MG / BRAND NAME NOT SPECIFIED [Suspect]
     Active Substance: LEFLUNOMIDE
     Indication: SPONDYLITIS
     Dosage: 20 MILLIGRAM DAILY;
     Dates: start: 20160928, end: 20210202
  2. USTEKINUMAB INJVLST 90MG/ML / BRAND NAME NOT SPECIFIED [Concomitant]
     Dosage: 90MG, 1X/6W; THERAPY END DATE : ASKED BUT UNKNOWN
     Dates: start: 20150203
  3. PREDNISOLON TABLET  5MG / BRAND NAME NOT SPECIFIED [Concomitant]
     Active Substance: PREDNISOLONE
     Dosage: 5 MILLIGRAM DAILY; THERAPY END DATE : ASKED BUT UNKNOWN
     Dates: start: 20201016
  4. OMEPRAZOL TABLET MSR 40MG / BRAND NAME NOT SPECIFIED [Concomitant]
     Dosage: 40 MILLIGRAM DAILY; THERAPY START DATE; THERAPY END DATE : ASKED BUT UNKNOWN
  5. ZOLEDRONINEZUUR INFVLST 0,05MG/ML / BRAND NAME NOT SPECIFIED [Concomitant]
     Active Substance: ZOLEDRONIC ACID
     Dosage: 5MG, 1X / Y; THERAPY END DATE : ASKED BUT UNKNOWN
     Dates: start: 20180408

REACTIONS (1)
  - Polyneuropathy [Unknown]

NARRATIVE: CASE EVENT DATE: 20210202
